FAERS Safety Report 9783173 (Version 1)
Quarter: 2013Q4

REPORT INFORMATION
  Report Type: Spontaneous
  Country: CH (occurrence: CH)
  Receive Date: 20131226
  Receipt Date: 20131226
  Transmission Date: 20140711
  Serious: Yes (Hospitalization)
  Sender: FDA-Public Use
  Company Number: CH-ASTRAZENECA-2013SE92777

PATIENT
  Age: 63 Year
  Sex: Male

DRUGS (8)
  1. BRILIQUE [Suspect]
     Indication: ACUTE MYOCARDIAL INFARCTION
     Route: 048
     Dates: start: 20131012, end: 20131118
  2. ASPIRIN CARDIO [Interacting]
     Indication: ACUTE MYOCARDIAL INFARCTION
     Route: 048
     Dates: start: 20131012
  3. SIMVASTIN [Interacting]
     Indication: HYPERCHOLESTEROLAEMIA
     Route: 048
  4. LISINOPRIL [Concomitant]
     Indication: ESSENTIAL HYPERTENSION
     Route: 048
  5. BELOC [Concomitant]
     Indication: ACUTE MYOCARDIAL INFARCTION
     Route: 048
  6. NEXIUM [Concomitant]
     Indication: GASTRIC ULCER
     Route: 048
  7. ZOLPIDEM [Concomitant]
     Indication: INSOMNIA
     Route: 048
  8. MOVICOL [Concomitant]
     Indication: CONSTIPATION
     Dosage: 1 DOSAGE FORM
     Route: 048

REACTIONS (2)
  - Drug interaction [Unknown]
  - Haemoptysis [Recovered/Resolved]
